FAERS Safety Report 4379571-X (Version None)
Quarter: 2004Q2

REPORT INFORMATION
  Report Type: 
  Country: None (occurrence: None)
  Receive Date: 20040415
  Receipt Date: 20040116
  Transmission Date: 20050107
  Serious: No
  Sender: FDA-Public Use
  Company Number: 2004-01-1635

PATIENT
  Age: 78 Year
  Sex: Male
  Weight: 63.5036 kg

DRUGS (1)
  1. CLARINEX [Suspect]
     Indication: NASOPHARYNGITIS
     Dosage: 5 MG QD ORAL
     Route: 048
     Dates: start: 20040115

REACTIONS (1)
  - POLLAKIURIA [None]
